FAERS Safety Report 19081890 (Version 1)
Quarter: 2021Q2

REPORT INFORMATION
  Report Type: Spontaneous
  Country: US (occurrence: US)
  Receive Date: 20210401
  Receipt Date: 20210401
  Transmission Date: 20210717
  Serious: Yes (Other)
  Sender: FDA-Public Use
  Company Number: US-AUROBINDO-AUR-APL-2021-012935

PATIENT
  Age: 40 Year
  Sex: Female

DRUGS (5)
  1. CIPROFLOXACIN. [Suspect]
     Active Substance: CIPROFLOXACIN
     Dosage: 500 MILLIGRAM, TWO TIMES A DAY
     Route: 048
     Dates: start: 2016, end: 2016
  2. AMIKACIN. [Concomitant]
     Active Substance: AMIKACIN
     Indication: MYCOBACTERIAL INFECTION
     Dosage: 1500 MILLIGRAM 3 WEEK
     Route: 042
     Dates: start: 2016
  3. IMIPENEM [Concomitant]
     Active Substance: IMIPENEM
     Indication: MYCOBACTERIAL INFECTION
     Dosage: 500 MILLIGRAM, FOUR TIMES/DAY
     Route: 042
     Dates: start: 2016
  4. CIPROFLOXACIN. [Suspect]
     Active Substance: CIPROFLOXACIN
     Indication: MYCOBACTERIAL INFECTION
     Dosage: UNK
     Route: 065
     Dates: start: 2016, end: 2016
  5. VENLAFAXINE [Concomitant]
     Active Substance: VENLAFAXINE HYDROCHLORIDE
     Indication: DEPRESSION
     Dosage: UNK
     Route: 065

REACTIONS (1)
  - Tendon disorder [Unknown]

NARRATIVE: CASE EVENT DATE: 2016
